FAERS Safety Report 11529897 (Version 7)
Quarter: 2017Q1

REPORT INFORMATION
  Report Type: Spontaneous
  Country: US (occurrence: US)
  Receive Date: 20150921
  Receipt Date: 20170327
  Transmission Date: 20170428
  Serious: Yes (Hospitalization, Other)
  Sender: FDA-Public Use
  Company Number: US-PFIZER INC-2015308526

PATIENT
  Age: 54 Year
  Sex: Male

DRUGS (3)
  1. DEPO-MEDROL [Suspect]
     Active Substance: METHYLPREDNISOLONE ACETATE
     Indication: PAIN IN EXTREMITY
     Dosage: 30 MG, UNK
     Route: 008
     Dates: start: 20121003
  2. DEPO-MEDROL [Suspect]
     Active Substance: METHYLPREDNISOLONE ACETATE
     Indication: INTERVERTEBRAL DISC DEGENERATION
     Dosage: 30 MG, UNK
     Route: 008
     Dates: start: 20121204
  3. DEPO-MEDROL [Suspect]
     Active Substance: METHYLPREDNISOLONE ACETATE
     Indication: BACK PAIN
     Dosage: UNK
     Route: 008

REACTIONS (1)
  - Paralysis [Unknown]

NARRATIVE: CASE EVENT DATE: 20121205
